FAERS Safety Report 8162840-5 (Version None)
Quarter: 2012Q1

REPORT INFORMATION
  Report Type: 
  Country: None (occurrence: None)
  Receive Date: 20120221
  Receipt Date: 20120131
  Transmission Date: 20120608
  Serious: Yes (Hospitalization, Other)
  Sender: FDA-Public Use
  Company Number: JPI-P-014377

PATIENT
  Age: 50 Year
  Sex: Female
  Weight: 90.2658 kg

DRUGS (11)
  1. ROPINIROLE [Concomitant]
  2. TOPIRAMATE (100 MILLIGRAM) [Concomitant]
  3. MELOXICAM [Concomitant]
  4. BUPROPION HCL [Concomitant]
  5. NALOXONE HCL [Concomitant]
  6. XYREM [Suspect]
  7. AMPHETAMINE DEXTROAMPHETAMINE MIXED SALTS [Concomitant]
  8. GABAPENTIN (600 MILLIGRAM) [Concomitant]
  9. XYREM [Suspect]
     Indication: CATAPLEXY
     Dosage: 6 GM (3 GM, 2 IN 1 D), ORAL;8 GM (4 GM, 2 IN 1 D), ORAL
     Route: 048
     Dates: start: 20110218, end: 20110308
  10. XYREM [Suspect]
     Indication: CATAPLEXY
     Dosage: 6 GM (3 GM, 2 IN 1 D), ORAL;8 GM (4 GM, 2 IN 1 D), ORAL
     Route: 048
     Dates: start: 20110309, end: 20110509
  11. ESTROGEN [Concomitant]

REACTIONS (14)
  - WEIGHT DECREASED [None]
  - DRUG INEFFECTIVE [None]
  - STRESS [None]
  - TREMOR [None]
  - PNEUMONIA [None]
  - APPETITE DISORDER [None]
  - VISUAL ACUITY REDUCED [None]
  - NERVOUSNESS [None]
  - POLLAKIURIA [None]
  - VISION BLURRED [None]
  - BACK PAIN [None]
  - DECREASED APPETITE [None]
  - MEMORY IMPAIRMENT [None]
  - CEREBROVASCULAR ACCIDENT [None]
